FAERS Safety Report 9695322 (Version 1)
Quarter: 2013Q4

REPORT INFORMATION
  Report Type: Spontaneous
  Country: US (occurrence: US)
  Receive Date: 20131119
  Receipt Date: 20131119
  Transmission Date: 20140711
  Serious: No
  Sender: FDA-Public Use
  Company Number: US-009507513-1311USA000321

PATIENT
  Age: 70 Year
  Sex: Female

DRUGS (1)
  1. LIPTRUZET [Suspect]
     Indication: BLOOD CHOLESTEROL
     Dosage: 10/20, QD
     Route: 048
     Dates: start: 201310, end: 201310

REACTIONS (1)
  - Headache [Recovered/Resolved]
